FAERS Safety Report 8763755 (Version 1)
Quarter: 2012Q4

REPORT INFORMATION
  Report Type: Spontaneous
  Country: US (occurrence: None)
  Receive Date: 20120831
  Receipt Date: 20120831
  Transmission Date: 20130627
  Serious: Yes (Hospitalization)
  Sender: FDA-Public Use
  Company Number: None

PATIENT
  Age: 70 Year
  Sex: Male
  Weight: 104.3 kg

DRUGS (2)
  1. BORTEZOMIB [Suspect]
     Dosage: D1/D8
     Route: 042
     Dates: start: 20120730, end: 20120806
  2. TORISEL [Suspect]
     Dosage: D1/D8
     Route: 042
     Dates: start: 20120730, end: 20120806

REACTIONS (3)
  - Groin pain [None]
  - Thrombocytopenia [None]
  - Lobar pneumonia [None]
